FAERS Safety Report 13411972 (Version 2)
Quarter: 2017Q2

REPORT INFORMATION
  Report Type: Spontaneous
  Country: DE (occurrence: DE)
  Receive Date: 20170406
  Receipt Date: 20170505
  Transmission Date: 20170830
  Serious: Yes (Other)
  Sender: FDA-Public Use
  Company Number: PHHY2017DE048992

PATIENT
  Age: 75 Year
  Sex: Female

DRUGS (2)
  1. TASIGNA [Suspect]
     Active Substance: NILOTINIB
     Indication: CHRONIC MYELOID LEUKAEMIA
     Dosage: 300 MG, QD
     Route: 048
     Dates: start: 20161103
  2. SUNITINIB [Suspect]
     Active Substance: SUNITINIB
     Indication: METASTATIC RENAL CELL CARCINOMA
     Dosage: 37.5 MG, QD
     Route: 048
     Dates: start: 201212

REACTIONS (3)
  - Blood count abnormal [Unknown]
  - Thrombocytopenia [Recovered/Resolved]
  - Epistaxis [Unknown]

NARRATIVE: CASE EVENT DATE: 20161219
